FAERS Safety Report 5421585-2 (Version None)
Quarter: 2007Q3

REPORT INFORMATION
  Report Type: 
  Country: None (occurrence: None)
  Receive Date: 20070718
  Receipt Date: 20070102
  Transmission Date: 20080115
  Serious: Yes (Hospitalization)
  Sender: FDA-Public Use
  Company Number: 2007001902

PATIENT
  Sex: Male
  Weight: 99.8 kg

DRUGS (2)
  1. CELEBREX [Suspect]
     Indication: RHEUMATOID ARTHRITIS
     Dosage: (200 MG)
     Dates: start: 20020114
  2. BEXTRA [Suspect]
     Indication: RHEUMATOID ARTHRITIS
     Dosage: (20 MG)
     Dates: start: 20020603

REACTIONS (2)
  - DEPRESSION [None]
  - MYOCARDIAL INFARCTION [None]
